FAERS Safety Report 9350075 (Version 1)
Quarter: 2013Q2

REPORT INFORMATION
  Report Type: Spontaneous
  Country: US (occurrence: US)
  Receive Date: 20130616
  Receipt Date: 20130616
  Transmission Date: 20140414
  Serious: No
  Sender: FDA-Public Use
  Company Number: US-ASTRAZENECA-2013SE40886

PATIENT
  Age: 63 Year
  Sex: Female
  Weight: 80.7 kg

DRUGS (7)
  1. CRESTOR [Suspect]
     Indication: BLOOD CHOLESTEROL ABNORMAL
     Route: 048
     Dates: start: 201304, end: 20130531
  2. ESTROGEN [Concomitant]
     Indication: PROCEDURAL HEADACHE
     Dosage: ONE HALF OF 0.5 MG.
  3. D3 [Concomitant]
     Indication: VITAMIN SUPPLEMENTATION
  4. VITAMIN E [Concomitant]
     Indication: VITAMIN SUPPLEMENTATION
  5. MEGA RED [Concomitant]
     Indication: MUSCLE SPASMS
  6. ZETIA [Concomitant]
  7. HCTZ [Concomitant]
     Indication: BLOOD PRESSURE ABNORMAL
     Dates: start: 2008

REACTIONS (3)
  - Fatigue [Recovering/Resolving]
  - Muscular weakness [Recovering/Resolving]
  - Muscle injury [Unknown]
